FAERS Safety Report 13121180 (Version 1)
Quarter: 2017Q1

REPORT INFORMATION
  Report Type: Spontaneous
  Country: US (occurrence: US)
  Receive Date: 20170113
  Receipt Date: 20170113
  Transmission Date: 20170428
  Serious: Yes (Disabling)
  Sender: FDA-Public Use
  Company Number: None

PATIENT
  Age: 58 Year
  Sex: Female
  Weight: 66.6 kg

DRUGS (18)
  1. BYDUREON [Concomitant]
     Active Substance: EXENATIDE
  2. VITAMIN B12 [Concomitant]
     Active Substance: CYANOCOBALAMIN
  3. LIDODERM [Concomitant]
     Active Substance: LIDOCAINE
  4. MAGNESIUM OXIDE. [Concomitant]
     Active Substance: MAGNESIUM OXIDE
  5. REFRESH EYE DROPS (MINERAL OIL\PETROLATUM) [Concomitant]
     Active Substance: MINERAL OIL\PETROLATUM
  6. INVOKANA [Suspect]
     Active Substance: CANAGLIFLOZIN
     Indication: DIABETES MELLITUS
     Dates: start: 20150307, end: 20160315
  7. LANTUS [Concomitant]
     Active Substance: INSULIN GLARGINE
  8. PEPCID [Concomitant]
     Active Substance: FAMOTIDINE
  9. METFORMIN [Concomitant]
     Active Substance: METFORMIN HYDROCHLORIDE
  10. IBUPROFEN. [Concomitant]
     Active Substance: IBUPROFEN
  11. CALCIUM +D [Concomitant]
     Active Substance: CALCIUM\VITAMIN D
  12. SYNTHROID [Concomitant]
     Active Substance: LEVOTHYROXINE SODIUM
  13. ASPIRIN. [Concomitant]
     Active Substance: ASPIRIN
  14. BACLOFEN. [Concomitant]
     Active Substance: BACLOFEN
  15. LOVAZA [Concomitant]
     Active Substance: OMEGA-3-ACID ETHYL ESTERS
  16. SPIRONOLACTONE. [Concomitant]
     Active Substance: SPIRONOLACTONE
  17. DIAZEPAM. [Concomitant]
     Active Substance: DIAZEPAM
  18. TIAGABINE [Concomitant]
     Active Substance: TIAGABINE

REACTIONS (1)
  - Vulvitis [None]

NARRATIVE: CASE EVENT DATE: 20161111
